FAERS Safety Report 8249569-X (Version None)
Quarter: 2012Q2

REPORT INFORMATION
  Report Type: 
  Country: None (occurrence: None)
  Receive Date: 20120402
  Receipt Date: 20120327
  Transmission Date: 20120825
  Serious: Yes (Hospitalization)
  Sender: FDA-Public Use
  Company Number: JP-ASTELLAS-2012JP001419

PATIENT
  Sex: Female
  Weight: 28.2 kg

DRUGS (5)
  1. PREDNISOLONE [Concomitant]
     Dosage: 20 MG, UNKNOWN/D
     Route: 048
  2. PREDNISOLONE [Concomitant]
     Indication: MYASTHENIA GRAVIS
     Dosage: 10 MG, UID/QD
     Route: 048
  3. STEROID [Concomitant]
     Route: 061
  4. MYTELASE [Concomitant]
     Indication: MYASTHENIA GRAVIS
     Dosage: 1 DF, TID
     Route: 048
  5. PROGRAF [Suspect]
     Indication: MYASTHENIA GRAVIS
     Dosage: 3 MG, UID/QD
     Route: 048
     Dates: end: 20060421

REACTIONS (1)
  - PNEUMONIA [None]
